FAERS Safety Report 15801564 (Version 1)
Quarter: 2019Q1

REPORT INFORMATION
  Report Type: Spontaneous
  Country: JP (occurrence: JP)
  Receive Date: 20190109
  Receipt Date: 20190109
  Transmission Date: 20190417
  Serious: Yes (Other)
  Sender: FDA-Public Use
  Company Number: JP-MYLANLABS-2019M1000758

PATIENT
  Age: 40 Year
  Sex: Male

DRUGS (6)
  1. FLUOROURACIL. [Suspect]
     Active Substance: FLUOROURACIL
     Indication: METASTASES TO LIVER
     Dosage: AS A PART OF FOLFOXIRI REGIMEN; EACH COURSE SPANNED OVER 2 WEEKS; TOTAL OF 7 COURSES ADMINISTERED
     Route: 065
  2. OXALIPLATIN. [Suspect]
     Active Substance: OXALIPLATIN
     Indication: METASTASES TO LIVER
     Dosage: AS A PART OF FOLFOXIRI REGIMEN; EACH COURSE SPANNED OVER 2 WEEKS; TOTAL OF 7 COURSES ADMINISTERED
     Route: 065
  3. CETUXIMAB. [Suspect]
     Active Substance: CETUXIMAB
     Indication: METASTASES TO LIVER
     Dosage: ADMINISTERED ALONG WITH FOLFOXIRI REGIMEN EACH COURSE SPANNED OVER 2 WEEKS; TOTAL OF 7 COURSES AD...
     Route: 065
  4. CETUXIMAB. [Suspect]
     Active Substance: CETUXIMAB
     Dosage: ADMINISTERED ALONG WITH FOLFOXIRI REGIMEN EACH COURSE SPANNED OVER 2 WEEKS; TOTAL OF 7 COURSES AD...
     Route: 065
  5. IRINOTECAN [Suspect]
     Active Substance: IRINOTECAN
     Indication: METASTASES TO LIVER
     Dosage: AS A PART OF FOLFOXIRI REGIMEN; EACH COURSE SPANNED OVER 2 WEEKS; TOTAL OF 7 COURSES ADMINISTERED
     Route: 065
  6. FOLINIC ACID [Suspect]
     Active Substance: LEUCOVORIN
     Indication: METASTASES TO LIVER
     Dosage: AS A PART OF FOLFOXIRI REGIMEN; EACH COURSE SPANNED OVER 2 WEEKS; TOTAL OF 7 COURSES ADMINISTERED
     Route: 065

REACTIONS (3)
  - Neuropathy peripheral [Unknown]
  - Rash [Unknown]
  - Alopecia [Unknown]
